FAERS Safety Report 7287215-2 (Version None)
Quarter: 2011Q1

REPORT INFORMATION
  Report Type: 
  Country: None (occurrence: None)
  Receive Date: 20110211
  Receipt Date: 20110204
  Transmission Date: 20110831
  Serious: Yes (Hospitalization)
  Sender: FDA-Public Use
  Company Number: FR-ROCHE-757958

PATIENT
  Sex: Male

DRUGS (5)
  1. NOCTRAN [Suspect]
     Route: 048
     Dates: start: 20100228, end: 20100228
  2. ALPRAZOLAM [Suspect]
     Route: 048
     Dates: start: 20100228, end: 20100228
  3. ACETAMINOPHEN AND TRAMADOL HCL [Suspect]
     Route: 048
     Dates: start: 20100228, end: 20100228
  4. RIVOTRIL [Suspect]
     Route: 048
     Dates: start: 20100228, end: 20100228
  5. MEPRONIZINE [Suspect]
     Route: 048
     Dates: start: 20100228, end: 20100228

REACTIONS (2)
  - TOXICITY TO VARIOUS AGENTS [None]
  - ALTERED STATE OF CONSCIOUSNESS [None]
